FAERS Safety Report 22217020 (Version 2)
Quarter: 2023Q2

REPORT INFORMATION
  Report Type: Report from Study
  Country: ZA (occurrence: ZA)
  Receive Date: 20230417
  Receipt Date: 20230428
  Transmission Date: 20230722
  Serious: Yes (Hospitalization, Other)
  Sender: FDA-Public Use
  Company Number: ZA-HALEON-ZACH2023EME016607

PATIENT

DRUGS (1)
  1. ACETAMINOPHEN\ASPIRIN\CAFFEINE [Suspect]
     Active Substance: ACETAMINOPHEN\ASPIRIN\CAFFEINE
     Indication: Product used for unknown indication
     Dosage: UNK

REACTIONS (7)
  - Gastric ulcer haemorrhage [Not Recovered/Not Resolved]
  - Oesophageal ulcer haemorrhage [Not Recovered/Not Resolved]
  - Haematemesis [Unknown]
  - Gastric fibrosis [Not Recovered/Not Resolved]
  - Drug abuse [Not Recovered/Not Resolved]
  - Gastrointestinal scarring [Not Recovered/Not Resolved]
  - Impaired quality of life [Not Recovered/Not Resolved]
